FAERS Safety Report 13220330 (Version 2)
Quarter: 2017Q1

REPORT INFORMATION
  Report Type: Spontaneous
  Country: ES (occurrence: ES)
  Receive Date: 20170210
  Receipt Date: 20170213
  Transmission Date: 20170428
  Serious: Yes (Other)
  Sender: FDA-Public Use
  Company Number: ES-009507513-1606ESP009247

PATIENT

DRUGS (9)
  1. SOFOSBUVIR [Suspect]
     Active Substance: SOFOSBUVIR
     Indication: CHRONIC HEPATITIS C
     Dosage: UNK
  2. PARITAPREVIR [Suspect]
     Active Substance: PARITAPREVIR
  3. RITONAVIR. [Suspect]
     Active Substance: RITONAVIR
  4. DACLATASVIR. [Suspect]
     Active Substance: DACLATASVIR
     Indication: CHRONIC HEPATITIS C
     Dosage: UNK
  5. SIMEPREVIR [Suspect]
     Active Substance: SIMEPREVIR
     Indication: CHRONIC HEPATITIS C
     Dosage: UNK
  6. DASABUVIR [Suspect]
     Active Substance: DASABUVIR
  7. RIBAVIRIN. [Suspect]
     Active Substance: RIBAVIRIN
     Indication: CHRONIC HEPATITIS C
     Dosage: UNK
     Route: 048
  8. LEDIPASVIR [Suspect]
     Active Substance: LEDIPASVIR
  9. OMBITASVIR [Suspect]
     Active Substance: OMBITASVIR

REACTIONS (3)
  - Hyperbilirubinaemia [Unknown]
  - Treatment failure [Unknown]
  - Anaemia [Unknown]
